FAERS Safety Report 13721354 (Version 1)
Quarter: 2017Q3

REPORT INFORMATION
  Report Type: Spontaneous
  Country: US (occurrence: US)
  Receive Date: 20170705
  Receipt Date: 20170705
  Transmission Date: 20171127
  Serious: Yes (Other)
  Sender: FDA-Public Use
  Company Number: None

PATIENT
  Age: 48 Year
  Sex: Female
  Weight: 67 kg

DRUGS (3)
  1. OBETICHOLIC ACID [Suspect]
     Active Substance: OBETICHOLIC ACID
     Indication: FATIGUE
     Dates: start: 20160916, end: 20170118
  2. OBETICHOLIC ACID [Suspect]
     Active Substance: OBETICHOLIC ACID
     Indication: PRURITUS
     Dates: start: 20160916, end: 20170118
  3. OBETICHOLIC ACID [Suspect]
     Active Substance: OBETICHOLIC ACID
     Indication: JAUNDICE
     Dates: start: 20160916, end: 20170118

REACTIONS (4)
  - Pruritus [None]
  - Fluid retention [None]
  - Fatigue [None]
  - Blood bilirubin increased [None]

NARRATIVE: CASE EVENT DATE: 20170621
